FAERS Safety Report 17578746 (Version 1)
Quarter: 2020Q1

REPORT INFORMATION
  Report Type: Spontaneous
  Country: None (occurrence: US)
  Receive Date: 20200324
  Receipt Date: 20200324
  Transmission Date: 20200409
  Serious: Yes (Other)
  Sender: FDA-Public Use
  Company Number: US-AMPHASTAR PHARMACEUTICALS, INC.-2081940

PATIENT
  Age: 64 Year
  Sex: Female
  Weight: 49.09 kg

DRUGS (4)
  1. MULTI-VITAMINS. [Concomitant]
  2. ASPIRIN. [Concomitant]
     Active Substance: ASPIRIN
  3. ENOXAPARIN SODIUM. [Suspect]
     Active Substance: ENOXAPARIN SODIUM
     Indication: PLATELET COUNT DECREASED
     Dates: start: 2013
  4. UNSPECIFIED DIABETIC MEDICATION. [Concomitant]

REACTIONS (2)
  - Stress [Unknown]
  - Injury associated with device [Unknown]

NARRATIVE: CASE EVENT DATE: 20200303
